FAERS Safety Report 4997091-6 (Version None)
Quarter: 2006Q2

REPORT INFORMATION
  Report Type: 
  Country: None (occurrence: None)
  Receive Date: 20060509
  Receipt Date: 20060407
  Transmission Date: 20061013
  Serious: Yes (Hospitalization)
  Sender: FDA-Public Use
  Company Number: TR-ROCHE-443428

PATIENT
  Age: 43 Year
  Sex: Male
  Weight: 70 kg

DRUGS (8)
  1. ZENAPAX [Suspect]
     Dosage: A ONE OFF DOSE OF 2MG/KG GIVEN 24 HOURS PRE-TRANSPLANT.
     Route: 042
     Dates: start: 20031225, end: 20031225
  2. ZENAPAX [Suspect]
     Dosage: 1MG/KG GIVEN EVERY TWO WEEKS FOR FOUR DOSES.
     Route: 042
     Dates: end: 20040218
  3. MYCOPHENOLATE MOFETIL [Suspect]
     Route: 065
     Dates: start: 20031225
  4. TACROLIMUS [Suspect]
     Route: 065
     Dates: start: 20031225
  5. PREDNISOLONE [Suspect]
     Route: 065
     Dates: start: 20031225
  6. GANCICLOVIR [Concomitant]
     Dates: start: 20031228
  7. MYCOSTATIN [Concomitant]
     Dates: start: 20031226, end: 20040705
  8. SULFAMETHOXAZOLE + TRIMETHOPRIM [Concomitant]
     Dates: start: 20031226, end: 20040705

REACTIONS (1)
  - CYTOMEGALOVIRUS INFECTION [None]
